FAERS Safety Report 20006058 (Version 1)
Quarter: 2021Q4

REPORT INFORMATION
  Report Type: Spontaneous
  Country: PT (occurrence: PT)
  Receive Date: 20211028
  Receipt Date: 20211028
  Transmission Date: 20220303
  Serious: Yes (Other)
  Sender: FDA-Public Use
  Company Number: PT-AUROBINDO-AUR-APL-2021-043589

PATIENT
  Age: 69 Year
  Sex: Female

DRUGS (1)
  1. LIDOCAINE [Suspect]
     Active Substance: LIDOCAINE
     Indication: Anaesthesia
     Dosage: 4.5 MILLIGRAM/KILOGRAM
     Route: 065

REACTIONS (10)
  - Local anaesthetic systemic toxicity [Unknown]
  - Supraventricular extrasystoles [Unknown]
  - Ventricular extrasystoles [Unknown]
  - Tachycardia [Unknown]
  - Hypertension [Unknown]
  - Altered state of consciousness [Unknown]
  - Psychomotor hyperactivity [Unknown]
  - Hypotension [Unknown]
  - Medication error [Unknown]
  - Overdose [Unknown]
